FAERS Safety Report 6291404-3 (Version None)
Quarter: 2009Q3

REPORT INFORMATION
  Report Type: 
  Country: None (occurrence: None)
  Receive Date: 20090730
  Receipt Date: 20090722
  Transmission Date: 20100115
  Serious: Yes (Hospitalization)
  Sender: FDA-Public Use
  Company Number: US-GILEAD-2009-0021550

PATIENT
  Sex: Female
  Weight: 62.198 kg

DRUGS (16)
  1. LETAIRIS [Suspect]
     Indication: PULMONARY ARTERIAL HYPERTENSION
     Route: 048
     Dates: start: 20090403
  2. METOPROLOL TARTRATE [Concomitant]
  3. LASIX [Concomitant]
  4. PROCARDIA XL [Concomitant]
  5. ASPIRIN [Concomitant]
  6. LACTULOSE [Concomitant]
  7. FOSAMAX [Concomitant]
  8. KLOR-CON M10 [Concomitant]
  9. XANAX [Concomitant]
  10. TYLENOL (CAPLET) [Concomitant]
  11. CYMBALTA [Concomitant]
  12. DARVOCET-N 100 [Concomitant]
  13. OXYCODONE HCL AND ACETAMINOPHEN [Concomitant]
  14. REGLAN [Concomitant]
  15. PROTONIX [Concomitant]
  16. COLACE [Concomitant]

REACTIONS (1)
  - PNEUMONIA [None]
